FAERS Safety Report 23515683 (Version 1)
Quarter: 2024Q1

REPORT INFORMATION
  Report Type: Spontaneous
  Country: JP (occurrence: JP)
  Receive Date: 20240213
  Receipt Date: 20240213
  Transmission Date: 20240409
  Serious: Yes (Death, Other)
  Sender: FDA-Public Use
  Company Number: JP-aspen-SDZ2023JP016900AA

PATIENT
  Age: 23 Year
  Sex: Male

DRUGS (3)
  1. NELARABINE [Suspect]
     Active Substance: NELARABINE
     Indication: Non-Hodgkin^s lymphoma
     Dosage: 650 MG/M2X5, 4 COURSES
     Route: 042
  2. GANCICLOVIR [Concomitant]
     Active Substance: GANCICLOVIR
     Indication: Non-Hodgkin^s lymphoma
     Dosage: UNK
     Route: 065
  3. RITUXIMAB [Concomitant]
     Active Substance: RITUXIMAB
     Indication: Non-Hodgkin^s lymphoma
     Dosage: UNK
     Route: 065

REACTIONS (9)
  - Non-Hodgkin^s lymphoma [Fatal]
  - Disease recurrence [Fatal]
  - Dysaesthesia [Not Recovered/Not Resolved]
  - Respiratory paralysis [Not Recovered/Not Resolved]
  - Bladder disorder [Unknown]
  - Anorectal disorder [Unknown]
  - Nystagmus [Unknown]
  - Spinal cord haemorrhage [Unknown]
  - Bone marrow necrosis [Unknown]
